FAERS Safety Report 21129563 (Version 1)
Quarter: 2022Q3

REPORT INFORMATION
  Report Type: Other
  Country: None (occurrence: IT)
  Receive Date: 20220726
  Receipt Date: 20220726
  Transmission Date: 20221027
  Serious: Yes (Hospitalization)
  Sender: FDA-Public Use
  Company Number: IT-OrBion Pharmaceuticals Private Limited-2131228

PATIENT
  Age: 7 Day
  Sex: Female
  Weight: 3.08 kg

DRUGS (1)
  1. VENLAFAXINE HYDROCHLORIDE [Suspect]
     Active Substance: VENLAFAXINE HYDROCHLORIDE
     Route: 065

REACTIONS (4)
  - Sedation complication [Recovered/Resolved]
  - Poor weight gain neonatal [Recovered/Resolved]
  - Exposure via breast milk [Recovered/Resolved]
  - Antidepressant drug level above therapeutic [Recovered/Resolved]
